FAERS Safety Report 19753781 (Version 2)
Quarter: 2021Q3

REPORT INFORMATION
  Report Type: Report from Study
  Country: None (occurrence: US)
  Receive Date: 20210826
  Receipt Date: 20210907
  Transmission Date: 20211014
  Serious: Yes (Other)
  Sender: FDA-Public Use
  Company Number: US-ABBVIE-21K-163-4054034-00

PATIENT
  Age: 58 Year
  Sex: Female
  Weight: 90.35 kg

DRUGS (2)
  1. RINVOQ [Suspect]
     Active Substance: UPADACITINIB
     Route: 048
     Dates: start: 20210723, end: 20210725
  2. RINVOQ [Suspect]
     Active Substance: UPADACITINIB
     Indication: RHEUMATOID ARTHRITIS
     Route: 048
     Dates: start: 201910, end: 20210712

REACTIONS (4)
  - Chills [Recovered/Resolved]
  - Abdominal abscess [Recovering/Resolving]
  - Postoperative wound infection [Recovering/Resolving]
  - Excessive skin [Recovered/Resolved]

NARRATIVE: CASE EVENT DATE: 20210712
